FAERS Safety Report 5739952-6 (Version None)
Quarter: 2008Q2

REPORT INFORMATION
  Report Type: 
  Country: None (occurrence: None)
  Receive Date: 20080513
  Receipt Date: 20080506
  Transmission Date: 20081010
  Serious: No
  Sender: FDA-Public Use
  Company Number: 2008AP001148

PATIENT
  Age: 33 Year
  Sex: Female

DRUGS (8)
  1. CITALOPRAM HYDROBROMIDE [Suspect]
     Indication: DEPRESSION
     Dosage: 10 MG; PO, 10 MG; PO
     Route: 048
     Dates: start: 20070416, end: 20080101
  2. CITALOPRAM HYDROBROMIDE [Suspect]
     Indication: DEPRESSION
     Dosage: 10 MG; PO, 10 MG; PO
     Route: 048
     Dates: start: 20070416, end: 20080101
  3. CLOTRIMAZOLE [Concomitant]
  4. CODEINE PHOSPHATE (CODEINE PHOSPHATE) [Concomitant]
  5. ACETAMINOPHEN [Concomitant]
  6. IBUPROFEN [Concomitant]
  7. POTASSIUM BICARBONATE (POTASSIUM BICARBONATE) [Concomitant]
  8. SODIUM ALGINATE (SODIUM ALGINATE) [Concomitant]

REACTIONS (2)
  - ABORTION INDUCED [None]
  - DRUG EXPOSURE DURING PREGNANCY [None]
